FAERS Safety Report 22227490 (Version 2)
Quarter: 2023Q2

REPORT INFORMATION
  Report Type: Spontaneous
  Country: US (occurrence: US)
  Receive Date: 20230419
  Receipt Date: 20230425
  Transmission Date: 20230722
  Serious: No
  Sender: FDA-Public Use
  Company Number: US-SANOFI-01578148

PATIENT
  Age: 84 Year
  Sex: Male

DRUGS (1)
  1. TOUJEO [Suspect]
     Active Substance: INSULIN GLARGINE
     Indication: Type 2 diabetes mellitus
     Dosage: 50 IU, QD
     Dates: start: 2016

REACTIONS (5)
  - Sneezing [Unknown]
  - Cough [Unknown]
  - Hypoacusis [Unknown]
  - Dry throat [Unknown]
  - Visual impairment [Unknown]
